FAERS Safety Report 6862681-2 (Version None)
Quarter: 2010Q3

REPORT INFORMATION
  Report Type: 
  Country: None (occurrence: None)
  Receive Date: 20100716
  Receipt Date: 20100712
  Transmission Date: 20110219
  Serious: Yes (Death)
  Sender: FDA-Public Use
  Company Number: 2009SP036843

PATIENT
  Age: 80 Year
  Sex: Male

DRUGS (8)
  1. MIRTAZAPINE [Suspect]
     Indication: DEPRESSION
     Dosage: 15 MG;ONCE;PO
     Route: 048
     Dates: start: 20091111
  2. SODIUM ALGINATE [Concomitant]
  3. ITOPRIDE HYDROCHLORIDE [Concomitant]
  4. DILTIAZEM HYDROCHLORIDE [Concomitant]
  5. TIOTROPIUM BROMIDE [Concomitant]
  6. MONOAMMONIUM GLYCYRRHIZINATE [Concomitant]
  7. GLYCINE 1.5% [Concomitant]
  8. L-CYSTEINE HYDROCHLORIDE HYDRATE [Concomitant]

REACTIONS (2)
  - RESPIRATORY ARREST [None]
  - RESPIRATORY RATE DECREASED [None]
